FAERS Safety Report 4901225-9 (Version None)
Quarter: 2006Q1

REPORT INFORMATION
  Report Type: 
  Country: None (occurrence: None)
  Receive Date: 20060201
  Receipt Date: 20060119
  Transmission Date: 20060701
  Serious: Yes (Death, Other)
  Sender: FDA-Public Use
  Company Number: 2005165105

PATIENT
  Age: 79 Year
  Sex: Male
  Weight: 71.8 kg

DRUGS (24)
  1. VFEND [Suspect]
     Indication: PNEUMONIA FUNGAL
     Dosage: 400 MG, INTRAVENOUS
     Route: 042
     Dates: start: 20051116, end: 20051124
  2. MAXIPIME [Concomitant]
  3. MINOCYCLINE HCL [Concomitant]
  4. ORGARAN [Concomitant]
  5. ALL OTHER THERAPEUTIC PRODUCTS (ALL OTHER THERAPEUTIC PRODUCTS) [Concomitant]
  6. PIPERACILLIN SODIUM [Concomitant]
  7. IDAMYCIN [Concomitant]
  8. CYTARABINE [Concomitant]
  9. KYTRIL [Concomitant]
  10. HUMULIN R [Concomitant]
  11. NOVOLIN 3OR (INSULIN INJECTION, BIPHASIC [Concomitant]
  12. KAYTWO N (MENATETRENONE) [Concomitant]
  13. ALBUMINAR (ALBLUMIN NORMAL HUMAN SERUM) [Concomitant]
  14. LASIX [Concomitant]
  15. SULFAMETHOXAZOLE + TRIMETHOPRIM [Concomitant]
  16. DIFLUCAN (FLUCONAZOLE) [Concomitant]
  17. FAMOTIDINE [Concomitant]
  18. FUNGIZONE [Concomitant]
  19. ISOSORBIDE MONONITRATE [Concomitant]
  20. MUCOSTA (REBAMIPIDE) [Concomitant]
  21. HARNAL (TAMSULOSIN HYDROCHLORIDE) [Concomitant]
  22. FLAVOXATE HCL [Concomitant]
  23. MAGNESIUM OXIDE (MAGNESIUM OXIDE) [Concomitant]
  24. PURSENNID (SENNA LEAF) [Concomitant]

REACTIONS (11)
  - ACUTE MYELOID LEUKAEMIA [None]
  - CELLULITIS [None]
  - COMA [None]
  - CONDITION AGGRAVATED [None]
  - DEPRESSED LEVEL OF CONSCIOUSNESS [None]
  - HYPOXIA [None]
  - LIVER DISORDER [None]
  - MIOSIS [None]
  - PARESIS [None]
  - PNEUMONIA BACTERIAL [None]
  - SOMNOLENCE [None]
